FAERS Safety Report 16303334 (Version 1)
Quarter: 2019Q2

REPORT INFORMATION
  Report Type: Spontaneous
  Country: FR (occurrence: FR)
  Receive Date: 20190513
  Receipt Date: 20190513
  Transmission Date: 20190711
  Serious: Yes (Hospitalization)
  Sender: FDA-Public Use
  Company Number: FR-ACCORD-126531

PATIENT
  Age: 80 Year
  Sex: Female
  Weight: 54 kg

DRUGS (9)
  1. CLOBEX [Concomitant]
     Active Substance: CLOBETASOL PROPIONATE
     Dosage: NR
     Route: 003
  2. DAIVOBET [Concomitant]
     Active Substance: BETAMETHASONE DIPROPIONATE\CALCIPOTRIENE
     Dosage: STRENGTH 50 MICROGRAMS / 0.5 MG / G
     Route: 003
     Dates: start: 20160610
  3. METHOTREXATE. [Concomitant]
     Active Substance: METHOTREXATE
     Indication: PSORIASIS
     Route: 048
     Dates: start: 2011, end: 20161216
  4. SPECIAFOLDINE [Concomitant]
     Active Substance: FOLIC ACID
     Route: 048
     Dates: start: 2011
  5. DIPROSONE [Concomitant]
     Active Substance: BETAMETHASONE DIPROPIONATE
     Dosage: NR
     Route: 003
     Dates: start: 20160610
  6. METHOTREXATE. [Suspect]
     Active Substance: METHOTREXATE
     Indication: PSORIASIS
     Route: 048
     Dates: start: 20161216
  7. ROZEX (METRONIDAZOLE) [Concomitant]
     Active Substance: METRONIDAZOLE
     Dosage: STRENGTH  0.75 PERCENT,,NR
     Route: 003
     Dates: start: 20160610
  8. SORIATANE [Concomitant]
     Active Substance: ACITRETIN
     Dosage: NR
     Route: 048
     Dates: start: 20180610
  9. SOOLANTRA [Concomitant]
     Active Substance: IVERMECTIN
     Dosage: STRENGTH 10 MG / G,NR
     Route: 003
     Dates: start: 20161216

REACTIONS (1)
  - Transient ischaemic attack [Recovered/Resolved]

NARRATIVE: CASE EVENT DATE: 20181220
